FAERS Safety Report 10109992 (Version 1)
Quarter: 2014Q2

REPORT INFORMATION
  Report Type: Spontaneous
  Country: US (occurrence: None)
  Receive Date: 20140424
  Receipt Date: 20140424
  Transmission Date: 20141212
  Serious: Yes (Hospitalization)
  Sender: FDA-Public Use
  Company Number: B0986081A

PATIENT
  Age: 9 Year
  Sex: Female

DRUGS (7)
  1. SERTRALINE [Suspect]
     Indication: ANXIETY
     Route: 048
  2. HYOSCYAMINE [Suspect]
     Indication: ANXIETY
  3. ONDANSETRON HYDROCHLORIDE [Suspect]
     Indication: ANXIETY
  4. MONTELUKAST SODIUM [Suspect]
     Indication: ANXIETY
  5. NITAZOXANIDE [Suspect]
     Indication: ANXIETY
  6. OMEPRAZOLE [Suspect]
     Indication: PRODUCT USED FOR UNKNOWN INDICATION
  7. DIPHENHYDRAMINE [Suspect]
     Indication: PRODUCT USED FOR UNKNOWN INDICATION

REACTIONS (10)
  - Anticholinergic syndrome [None]
  - Mental status changes [None]
  - Hallucination [None]
  - Mydriasis [None]
  - Tachycardia [None]
  - Pyrexia [None]
  - Serotonin syndrome [None]
  - Treatment failure [None]
  - Vision blurred [None]
  - Clonus [None]
